FAERS Safety Report 20280613 (Version 1)
Quarter: 2022Q1

REPORT INFORMATION
  Report Type: Spontaneous
  Country: US (occurrence: None)
  Receive Date: 20220101
  Receipt Date: 20220101
  Transmission Date: 20220423
  Serious: No
  Sender: FDA-Public Use
  Company Number: None

PATIENT
  Age: 54 Year
  Sex: Female
  Weight: 85.5 kg

DRUGS (1)
  1. OZEMPIC [Suspect]
     Active Substance: SEMAGLUTIDE
     Indication: Type 2 diabetes mellitus
     Dosage: OTHER QUANTITY : .25 INJECTION(S);?OTHER FREQUENCY : 1X/WEEK;?
     Route: 061
     Dates: start: 20211203

REACTIONS (1)
  - Alopecia [None]

NARRATIVE: CASE EVENT DATE: 20211225
